FAERS Safety Report 25236326 (Version 4)
Quarter: 2025Q3

REPORT INFORMATION
  Report Type: Spontaneous
  Country: US (occurrence: US)
  Receive Date: 20250424
  Receipt Date: 20250718
  Transmission Date: 20251020
  Serious: No
  Sender: BRISTOL-MYERS SQUIBB COMPANY
  Company Number: US-BRISTOL-MYERS SQUIBB COMPANY-2025-060487

PATIENT
  Age: 86 Year
  Sex: Male

DRUGS (3)
  1. LENALIDOMIDE [Suspect]
     Active Substance: LENALIDOMIDE
     Indication: Myelodysplastic syndrome
     Dosage: FREQUENCY- TAKE 1 CAPSULE BY MOUTH DAILY FOR 7 DAYS ON THEN 7 DAYS OFF ALTERNATING WEEKS
     Route: 048
  2. LENALIDOMIDE [Suspect]
     Active Substance: LENALIDOMIDE
     Dosage: FREQUENCY- TAKE 1 CAPSULE BY MOUTH DAILY FOR 7 DAYS ON THEN 7 DAYS OFF ALTERNATING WEEKS
     Route: 048
  3. LENALIDOMIDE [Suspect]
     Active Substance: LENALIDOMIDE
     Route: 048

REACTIONS (4)
  - Urinary tract infection [Recovered/Resolved]
  - Dysuria [Recovering/Resolving]
  - Haemoglobin abnormal [Unknown]
  - Fatigue [Recovered/Resolved]
